FAERS Safety Report 6587903 (Version 5)
Quarter: 2016Q2

REPORT INFORMATION
  Report Type: Spontaneous
  Country: US (occurrence: US)
  Receive Date: 20080319
  Receipt Date: 20160509
  Transmission Date: 20160815
  Serious: Yes (Hospitalization, Other)
  Sender: FDA-Public Use
  Company Number: PHEH2008US01512

PATIENT
  Age: 43 Year
  Sex: Female
  Weight: 74.83 kg

DRUGS (5)
  1. GLEEVEC [Suspect]
     Active Substance: IMATINIB MESYLATE
     Dosage: 600 MG QD
     Route: 048
     Dates: start: 20070807, end: 20071004
  2. GLEEVEC [Suspect]
     Active Substance: IMATINIB MESYLATE
     Dosage: 400 MG QD
     Route: 048
     Dates: start: 20080411
  3. GLEEVEC [Suspect]
     Active Substance: IMATINIB MESYLATE
     Dosage: 400 MG QD
     Route: 048
     Dates: start: 20071218, end: 20080124
  4. GLEEVEC [Suspect]
     Active Substance: IMATINIB MESYLATE
     Indication: CHRONIC MYELOID LEUKAEMIA
     Dosage: 400 MG, QD
     Route: 048
     Dates: start: 2002, end: 20070807
  5. GLEEVEC [Suspect]
     Active Substance: IMATINIB MESYLATE
     Dosage: 800 MG QD
     Route: 048
     Dates: start: 20071004, end: 20071218

REACTIONS (15)
  - Breech presentation [Recovered/Resolved]
  - Abdominal distension [Not Recovered/Not Resolved]
  - Labour complication [Recovered/Resolved]
  - Hypokalaemia [Unknown]
  - Rubella in pregnancy [Unknown]
  - Flatulence [Unknown]
  - Premature delivery [Recovered/Resolved]
  - Abdominal pain [Recovered/Resolved]
  - White blood cell count increased [Unknown]
  - Haematoma [Unknown]
  - Unintended pregnancy [Unknown]
  - Maternal exposure during pregnancy [Unknown]
  - Hypertension [Unknown]
  - Red blood cells urine positive [Unknown]
  - Vomiting [Unknown]

NARRATIVE: CASE EVENT DATE: 20080124
